FAERS Safety Report 5896292-2 (Version None)
Quarter: 2008Q3

REPORT INFORMATION
  Report Type: 
  Country: None (occurrence: None)
  Receive Date: 20080924
  Receipt Date: 20070802
  Transmission Date: 20090109
  Serious: Yes (Other)
  Sender: FDA-Public Use
  Company Number: US-ASTRAZENECA-2007UW18952

PATIENT
  Age: 44 Year
  Sex: Female
  Weight: 81.6 kg

DRUGS (2)
  1. SEROQUEL [Suspect]
     Indication: DEPRESSION
     Route: 048
     Dates: start: 20011209, end: 20030806
  2. ZYPREXA [Concomitant]
     Indication: DEPRESSION
     Dates: start: 19960315

REACTIONS (2)
  - DIABETES MELLITUS [None]
  - PANCREATITIS [None]
